FAERS Safety Report 18712621 (Version 1)
Quarter: 2021Q1

REPORT INFORMATION
  Report Type: Spontaneous
  Country: US (occurrence: US)
  Receive Date: 20210107
  Receipt Date: 20210107
  Transmission Date: 20210419
  Serious: Yes (Life-Threatening, Hospitalization, Other)
  Sender: FDA-Public Use
  Company Number: US-GLAXOSMITHKLINE-US2020GSK255939

PATIENT
  Age: 69 Year
  Sex: Male

DRUGS (1)
  1. VALACICLOVIR [Suspect]
     Active Substance: VALACYCLOVIR HYDROCHLORIDE
     Indication: RASH
     Dosage: 500 MG, BID

REACTIONS (11)
  - Flight of ideas [Recovered/Resolved]
  - Confusional state [Recovered/Resolved]
  - Mental status changes [Recovered/Resolved]
  - Neurotoxicity [Recovered/Resolved]
  - Persecutory delusion [Recovered/Resolved]
  - Aphasia [Recovered/Resolved]
  - Encephalopathy [Recovered/Resolved]
  - Asthenia [Recovered/Resolved]
  - Memory impairment [Recovered/Resolved]
  - Hallucinations, mixed [Recovered/Resolved]
  - Confabulation [Recovered/Resolved]
